FAERS Safety Report 18417360 (Version 2)
Quarter: 2021Q1

REPORT INFORMATION
  Report Type: Spontaneous
  Country: US (occurrence: US)
  Receive Date: 20201022
  Receipt Date: 20210106
  Transmission Date: 20210419
  Serious: Yes (Death)
  Sender: FDA-Public Use
  Company Number: 2020SGN02564

PATIENT
  Sex: Female

DRUGS (3)
  1. TUKYSA [Suspect]
     Active Substance: TUCATINIB
     Dosage: 2 TABLETS IN THE AM AND 1 TABLET IN THE PM
  2. HERCEPTIN [Concomitant]
     Active Substance: TRASTUZUMAB
     Indication: BREAST CANCER FEMALE
     Dosage: UNK, Q3WEEKS
     Dates: start: 20200530
  3. TUKYSA [Suspect]
     Active Substance: TUCATINIB
     Indication: BREAST CANCER FEMALE
     Dosage: UNK UNK, BID

REACTIONS (7)
  - Death [Fatal]
  - Nausea [Unknown]
  - Liver function test decreased [Unknown]
  - Vomiting [Recovered/Resolved]
  - Headache [Unknown]
  - Product dose omission issue [Unknown]
  - Laboratory test abnormal [Unknown]
